FAERS Safety Report 6457358-1 (Version None)
Quarter: 2009Q4

REPORT INFORMATION
  Report Type: 
  Country: None (occurrence: None)
  Receive Date: 20091119
  Receipt Date: 20091103
  Transmission Date: 20100525
  Serious: Yes (Other)
  Sender: FDA-Public Use
  Company Number: 2009SA001752

PATIENT
  Age: 75 Year
  Sex: Female

DRUGS (3)
  1. MULTAQ / UNKNOWN [Suspect]
     Indication: ATRIAL FIBRILLATION
     Dosage: 400 MILLIGRAM (S) ; TWICE A DAY ; ORAL
     Route: 048
     Dates: start: 20091017
  2. METOPROLOL [Concomitant]
  3. AMIODARONE HCL [Concomitant]

REACTIONS (4)
  - ABDOMINAL PAIN UPPER [None]
  - ATRIAL FIBRILLATION [None]
  - DRUG EFFECT DECREASED [None]
  - HEART RATE DECREASED [None]
